FAERS Safety Report 17150391 (Version 1)
Quarter: 2019Q4

REPORT INFORMATION
  Report Type: Report from Study
  Country: CN (occurrence: CN)
  Receive Date: 20191213
  Receipt Date: 20191213
  Transmission Date: 20200122
  Serious: Yes (Death, Other)
  Sender: FDA-Public Use
  Company Number: CN-GLAXOSMITHKLINE-CN2019APC185465

PATIENT

DRUGS (9)
  1. RIFABUTIN. [Suspect]
     Active Substance: RIFABUTIN
     Indication: TUBERCULOSIS
  2. CILASTATIN [Suspect]
     Active Substance: CILASTATIN
     Indication: TUBERCULOSIS
  3. IMIPENEM [Suspect]
     Active Substance: IMIPENEM
  4. CASPOFUNGIN [Suspect]
     Active Substance: CASPOFUNGIN
     Indication: TUBERCULOSIS
  5. LAMIVUDINE. [Suspect]
     Active Substance: LAMIVUDINE
     Indication: HIV INFECTION
     Dosage: 1 DF, QD
     Route: 048
     Dates: start: 20170114, end: 20190115
  6. MOXIFLOXACIN. [Suspect]
     Active Substance: MOXIFLOXACIN
     Indication: TUBERCULOSIS
  7. EFAVIRENZ TABLET [Suspect]
     Active Substance: EFAVIRENZ
     Indication: TUBERCULOSIS
  8. DOLUTEGRAVIR [Suspect]
     Active Substance: DOLUTEGRAVIR
     Indication: HIV TEST POSITIVE
     Dosage: 1 DF, QD
     Route: 048
     Dates: start: 20180821, end: 20190105
  9. TENOFOVIR DISOPROXIL FUMARATE. [Suspect]
     Active Substance: TENOFOVIR DISOPROXIL FUMARATE
     Indication: HIV INFECTION
     Dosage: 1 DF, QD
     Route: 048
     Dates: start: 20170114, end: 20190115

REACTIONS (1)
  - Pulmonary tuberculosis [Fatal]

NARRATIVE: CASE EVENT DATE: 20190216
